FAERS Safety Report 12758593 (Version 9)
Quarter: 2017Q2

REPORT INFORMATION
  Report Type: Spontaneous
  Country: US (occurrence: US)
  Receive Date: 20160919
  Receipt Date: 20170426
  Transmission Date: 20170830
  Serious: Yes (Congenital Anomaly, Other)
  Sender: FDA-Public Use
  Company Number: PHEH2016US023303

PATIENT
  Sex: Male

DRUGS (3)
  1. ZOFRAN [Suspect]
     Active Substance: ONDANSETRON HYDROCHLORIDE
     Indication: FOETAL EXPOSURE DURING PREGNANCY
     Dosage: MOTHER DOSE: 8MG, UNK AND 4 MG, UNK
     Route: 064
  2. ZOFRAN [Suspect]
     Active Substance: ONDANSETRON HYDROCHLORIDE
     Indication: FOETAL EXPOSURE DURING PREGNANCY
     Route: 064
  3. ZOFRAN ODT [Suspect]
     Active Substance: ONDANSETRON HYDROCHLORIDE
     Indication: FOETAL EXPOSURE DURING PREGNANCY
     Dosage: MOTHER DOSE: 08 MG, TID
     Route: 064

REACTIONS (27)
  - Single functional kidney [Unknown]
  - Congenital megaureter [Unknown]
  - Premature baby [Unknown]
  - Congenital hydronephrosis [Unknown]
  - Spina bifida [Unknown]
  - Immune system disorder [Unknown]
  - Injury [Unknown]
  - Pyuria [Unknown]
  - Pneumonia [Unknown]
  - Ureteric dilatation [Unknown]
  - Pyrexia [Unknown]
  - Urinary tract malformation [Unknown]
  - Congenital bladder neck obstruction [Unknown]
  - Developmental delay [Unknown]
  - Gastrooesophageal reflux disease [Unknown]
  - Chronic kidney disease [Unknown]
  - Pyelonephritis [Unknown]
  - Pyelocaliectasis [Unknown]
  - Cerebral calcification [Unknown]
  - Urethral valves [Unknown]
  - Urethral atresia [Unknown]
  - Congenital vesicoureteric reflux [Unknown]
  - Reflux nephropathy [Unknown]
  - Urethral stenosis [Unknown]
  - Urethral disorder [Unknown]
  - Foetal exposure during pregnancy [Unknown]
  - Obstructive uropathy [Unknown]
